FAERS Safety Report 19595080 (Version 1)
Quarter: 2021Q3

REPORT INFORMATION
  Report Type: Spontaneous
  Country: US (occurrence: US)
  Receive Date: 20210723
  Receipt Date: 20210723
  Transmission Date: 20211014
  Serious: No
  Sender: FDA-Public Use
  Company Number: US-INVENTIA-000122

PATIENT
  Age: 37 Year
  Sex: Male
  Weight: 72.6 kg

DRUGS (1)
  1. PALIPERIDONE/PALIPERIDONE PALMITATE [Suspect]
     Active Substance: PALIPERIDONE
     Indication: SCHIZOPHRENIA
     Dosage: 1 TABLET DAILY
     Route: 048
     Dates: start: 20201005, end: 20210101

REACTIONS (5)
  - Abnormal behaviour [Recovered/Resolved]
  - Insomnia [Recovered/Resolved]
  - Judgement impaired [Recovered/Resolved]
  - Drug ineffective [Recovered/Resolved]
  - Road traffic accident [Unknown]

NARRATIVE: CASE EVENT DATE: 20201215
